FAERS Safety Report 5053863-3 (Version None)
Quarter: 2006Q3

REPORT INFORMATION
  Report Type: 
  Country: None (occurrence: None)
  Receive Date: 20060718
  Receipt Date: 20060707
  Transmission Date: 20061208
  Serious: Yes (Other)
  Sender: FDA-Public Use
  Company Number: PHBS2006KR10221

PATIENT
  Age: 43 Year
  Sex: Female

DRUGS (1)
  1. GLEEVEC [Suspect]
     Indication: CHRONIC MYELOID LEUKAEMIA
     Dosage: 400 MG/D
     Route: 048
     Dates: start: 20020815

REACTIONS (4)
  - BIOPSY BREAST [None]
  - BREAST CANCER [None]
  - BREAST MASS [None]
  - MASTECTOMY [None]
